FAERS Safety Report 4462704-4 (Version None)
Quarter: 2004Q3

REPORT INFORMATION
  Report Type: 
  Country: None (occurrence: None)
  Receive Date: 20040927
  Receipt Date: 20040914
  Transmission Date: 20050211
  Serious: Yes (Other)
  Sender: FDA-Public Use
  Company Number: 2004064699

PATIENT
  Age: 72 Year
  Sex: Male
  Weight: 85.2762 kg

DRUGS (4)
  1. VIAGRA [Suspect]
     Indication: ERECTILE DYSFUNCTION
     Dosage: (100 MG, AS NECESSARY), ORAL
     Route: 048
  2. HYDROCHLOROTHIAZIDE [Suspect]
     Indication: FLUID RETENTION
     Dosage: ORAL
     Route: 048
     Dates: end: 20040101
  3. ACID PREPARATIONS (ACID PREPARATIONS) [Suspect]
     Indication: GASTROOESOPHAGEAL REFLUX DISEASE
     Dates: end: 20040101
  4. ALL OTHER THERAPEUTIC PRODUCTS (ALL OTHER THERAPEUTIC PRODUCTS) [Suspect]
     Indication: ILL-DEFINED DISORDER
     Dates: end: 20040101

REACTIONS (7)
  - DEPRESSION [None]
  - DRUG EFFECT DECREASED [None]
  - HERPES ZOSTER [None]
  - HOT FLUSH [None]
  - PROSTATE CANCER [None]
  - SCAB [None]
  - WEIGHT DECREASED [None]
